FAERS Safety Report 6517098-7 (Version None)
Quarter: 2009Q4

REPORT INFORMATION
  Report Type: 
  Country: None (occurrence: None)
  Receive Date: 20091223
  Receipt Date: 20091216
  Transmission Date: 20100525
  Serious: Yes (Life-Threatening)
  Sender: FDA-Public Use
  Company Number: B0610418A

PATIENT
  Sex: Male
  Weight: 10.2 kg

DRUGS (5)
  1. ZIDOVUDINE [Suspect]
     Indication: HIV INFECTION
     Dosage: 10ML TWICE PER DAY
     Route: 048
     Dates: start: 20091109
  2. LAMIVUDINE [Suspect]
     Indication: HIV INFECTION
     Dosage: 4ML TWICE PER DAY
     Route: 048
     Dates: start: 20091109
  3. NEVIRAPINE [Suspect]
     Indication: HIV INFECTION
     Dosage: 10ML PER DAY
     Route: 048
     Dates: start: 20091109
  4. COTRIMOXAZOLE [Concomitant]
  5. AMOXICILLIN [Concomitant]

REACTIONS (2)
  - HEPATIC ENZYME INCREASED [None]
  - TREATMENT NONCOMPLIANCE [None]
